FAERS Safety Report 6440367-6 (Version None)
Quarter: 2009Q4

REPORT INFORMATION
  Report Type: 
  Country: None (occurrence: None)
  Receive Date: 20091113
  Receipt Date: 20091102
  Transmission Date: 20100525
  Serious: Yes (Hospitalization)
  Sender: FDA-Public Use
  Company Number: PHHY2009RU42188

PATIENT
  Age: 55 Year
  Sex: Male

DRUGS (1)
  1. ACLASTA [Suspect]
     Indication: OSTEOPOROSIS
     Dosage: UNK
     Dates: start: 20090918

REACTIONS (6)
  - APHASIA [None]
  - CEREBROVASCULAR ACCIDENT [None]
  - HEADACHE [None]
  - HEMIPARESIS [None]
  - PAIN [None]
  - PYREXIA [None]
